FAERS Safety Report 4493787-3 (Version None)
Quarter: 2004Q4

REPORT INFORMATION
  Report Type: 
  Country: None (occurrence: None)
  Receive Date: 20041103
  Receipt Date: 20041103
  Transmission Date: 20050328
  Serious: Yes (Life-Threatening, Hospitalization, Disabling, Other)
  Sender: FDA-Public Use
  Company Number: None

PATIENT
  Age: 54 Year
  Sex: Female
  Weight: 63.9572 kg

DRUGS (4)
  1. ENBREL [Suspect]
     Indication: RHEUMATOID ARTHRITIS
     Dosage: 25 MG SQ 2X/WK
     Route: 058
     Dates: start: 20010624, end: 20040727
  2. METHOTREXATE [Concomitant]
  3. MOTRIN [Concomitant]
  4. VIOXX [Concomitant]

REACTIONS (5)
  - ACUTE RESPIRATORY DISTRESS SYNDROME [None]
  - ACUTE RESPIRATORY FAILURE [None]
  - INFLAMMATION [None]
  - LUNG ABSCESS [None]
  - PNEUMONIA ASPIRATION [None]
